FAERS Safety Report 7296879-9 (Version None)
Quarter: 2011Q1

REPORT INFORMATION
  Report Type: 
  Country: None (occurrence: None)
  Receive Date: 20110204
  Receipt Date: 20110127
  Transmission Date: 20110831
  Serious: Yes (Hospitalization)
  Sender: FDA-Public Use
  Company Number: FR-SEPTODONT-201100014

PATIENT
  Sex: Female

DRUGS (1)
  1. SCANDONEST PLAIN [Suspect]
     Indication: LOCAL ANAESTHESIA
     Dosage: 3 CARTRIDGES 1.7 ML INFERIOR MANDIBULAR INJECTION  2 ML SUPERIOR MAXILLARY INJECTION DENTAL
     Route: 004
     Dates: start: 20110119

REACTIONS (2)
  - PALPITATIONS [None]
  - BLOOD PRESSURE SYSTOLIC INCREASED [None]
